FAERS Safety Report 23245257 (Version 1)
Quarter: 2023Q4

REPORT INFORMATION
  Report Type: Spontaneous
  Country: US (occurrence: US)
  Receive Date: 20231130
  Receipt Date: 20231130
  Transmission Date: 20240110
  Serious: No
  Sender: FDA-Public Use
  Company Number: US-ALVOGEN-2022088900

PATIENT
  Sex: Female

DRUGS (4)
  1. TERIPARATIDE [Suspect]
     Active Substance: TERIPARATIDE
     Indication: Osteoporosis
     Dosage: EXPIRATION DATE: FEB-2024
  2. TERIPARATIDE [Suspect]
     Active Substance: TERIPARATIDE
     Indication: Osteoporosis
     Dosage: SHE RECEIVED THE NEW TERIPARATIDE PEN ON 16-JAN-2023.
  3. TERIPARATIDE [Suspect]
     Active Substance: TERIPARATIDE
     Indication: Osteoporosis
     Dosage: EXPIRATION DATE: 31-JUL-2024
     Dates: start: 20230524
  4. TERIPARATIDE [Suspect]
     Active Substance: TERIPARATIDE
     Indication: Osteoporosis
     Dosage: EXPIRATION DATE: UU-JUL-2024?BATCH NO: 4143824

REACTIONS (7)
  - Product dose omission issue [Unknown]
  - Device malfunction [Unknown]
  - Device defective [Unknown]
  - Device operational issue [Unknown]
  - Product outer packaging issue [Unknown]
  - Device physical property issue [Unknown]
  - Product use issue [Unknown]
